FAERS Safety Report 7282284-8 (Version None)
Quarter: 2011Q1

REPORT INFORMATION
  Report Type: 
  Country: None (occurrence: None)
  Receive Date: 20110209
  Receipt Date: 20110125
  Transmission Date: 20110831
  Serious: Yes (Other)
  Sender: FDA-Public Use
  Company Number: DE-TEVA-265643ISR

PATIENT
  Age: 10 Year
  Sex: Female

DRUGS (2)
  1. COPAXONE [Suspect]
     Indication: MULTIPLE SCLEROSIS
     Route: 058
     Dates: start: 20110116
  2. INSULIN [Concomitant]

REACTIONS (3)
  - HYPOGLYCAEMIA [None]
  - OFF LABEL USE [None]
  - HYPERGLYCAEMIA [None]
